FAERS Safety Report 12715179 (Version 1)
Quarter: 2016Q3

REPORT INFORMATION
  Report Type: Spontaneous
  Country: US (occurrence: US)
  Receive Date: 20160905
  Receipt Date: 20160905
  Transmission Date: 20161109
  Serious: No
  Sender: FDA-Public Use
  Company Number: PHEH2016US022144

PATIENT
  Sex: Female

DRUGS (1)
  1. SANDOSTATIN LAR DEPOT [Suspect]
     Active Substance: OCTREOTIDE ACETATE
     Indication: PRODUCT USED FOR UNKNOWN INDICATION
     Dosage: 50 MG (20 MG AND 30 MG EVERY MONTH), QMO
     Route: 065

REACTIONS (4)
  - Inappropriate schedule of drug administration [Unknown]
  - Injection site mass [Unknown]
  - Injection site pain [Unknown]
  - Drug ineffective [Unknown]
